FAERS Safety Report 6500492-8 (Version None)
Quarter: 2009Q4

REPORT INFORMATION
  Report Type: 
  Country: None (occurrence: None)
  Receive Date: 20091216
  Receipt Date: 20091127
  Transmission Date: 20100525
  Serious: Yes (Hospitalization)
  Sender: FDA-Public Use
  Company Number: PHHO2009DE07500

PATIENT
  Sex: Female

DRUGS (3)
  1. ACZ885 ACZ+ [Suspect]
     Indication: RHEUMATOID ARTHRITIS
     Dosage: 150 MG, QW4
     Route: 058
     Dates: end: 20090519
  2. ACZ885 ACZ+ [Suspect]
     Dosage: NO TREATMENT
     Dates: start: 20090519, end: 20090722
  3. METHOTREXATE [Concomitant]
     Indication: RHEUMATOID ARTHRITIS
     Dosage: UNK

REACTIONS (3)
  - MENINGITIS [None]
  - SPINAL CORD INJURY [None]
  - SURGERY [None]
